FAERS Safety Report 13807524 (Version 1)
Quarter: 2017Q3

REPORT INFORMATION
  Report Type: Spontaneous
  Country: JP (occurrence: JP)
  Receive Date: 20170728
  Receipt Date: 20170728
  Transmission Date: 20171127
  Serious: Yes (Other)
  Sender: FDA-Public Use
  Company Number: JP-PFIZER INC-2017326290

PATIENT

DRUGS (1)
  1. INLYTA [Suspect]
     Active Substance: AXITINIB
     Indication: RENAL CANCER
     Dosage: 6 MG, DAILY
     Route: 048
     Dates: start: 2013

REACTIONS (4)
  - Enterocolitis [Unknown]
  - Diarrhoea [Unknown]
  - Proteinuria [Unknown]
  - Weight decreased [Unknown]
